FAERS Safety Report 6745539-9 (Version None)
Quarter: 2010Q2

REPORT INFORMATION
  Report Type: 
  Country: None (occurrence: None)
  Receive Date: 20100524
  Receipt Date: 20100524
  Transmission Date: 20101027
  Serious: No
  Sender: FDA-Public Use
  Company Number: None

PATIENT

DRUGS (1)
  1. PERINEAL SOLUTION WITH ALOE VERA 8 OZ. BOTTLE CANBERRA CORP [Suspect]
     Indication: THERAPEUTIC SKIN CARE TOPICAL
     Dates: start: 20100503, end: 20100511

REACTIONS (6)
  - BURKHOLDERIA CEPACIA COMPLEX INFECTION [None]
  - CULTURE URINE POSITIVE [None]
  - PRODUCT CONTAMINATION [None]
  - PRODUCT QUALITY ISSUE [None]
  - PSEUDOMONAS INFECTION [None]
  - URINARY TRACT INFECTION [None]
